FAERS Safety Report 8547434-1 (Version None)
Quarter: 2012Q3

REPORT INFORMATION
  Report Type: 
  Country: None (occurrence: None)
  Receive Date: 20120727
  Receipt Date: 20120501
  Transmission Date: 20120928
  Serious: No
  Sender: FDA-Public Use
  Company Number: US-ASTRAZENECA-2012SE24606

PATIENT
  Sex: Male

DRUGS (4)
  1. TRAMADOL HYDROCHLORIDE [Concomitant]
     Indication: ANALGESIC THERAPY
  2. AZOLE [Concomitant]
     Indication: BLOOD PRESSURE ABNORMAL
  3. LEXOPRIL [Concomitant]
  4. SEROQUEL [Suspect]
     Indication: MAJOR DEPRESSION
     Route: 048

REACTIONS (10)
  - CARDIAC DISORDER [None]
  - VENOUS INSUFFICIENCY [None]
  - MALAISE [None]
  - MEMORY IMPAIRMENT [None]
  - INSOMNIA [None]
  - DRUG DOSE OMISSION [None]
  - SPINAL OSTEOARTHRITIS [None]
  - LIGAMENT RUPTURE [None]
  - NAUSEA [None]
  - VOMITING [None]
